FAERS Safety Report 6005409-0 (Version None)
Quarter: 2008Q4

REPORT INFORMATION
  Report Type: 
  Country: None (occurrence: None)
  Receive Date: 20081217
  Receipt Date: 20081210
  Transmission Date: 20090506
  Serious: Yes (Other)
  Sender: FDA-Public Use
  Company Number: GB-RANBAXY-2008RR-19775

PATIENT
  Age: 64 Year
  Sex: Male
  Weight: 87 kg

DRUGS (4)
  1. SIMVASTATIN [Suspect]
     Indication: HYPERCHOLESTEROLAEMIA
     Dosage: UNK
     Route: 048
     Dates: start: 20070327, end: 20081112
  2. ASPIRIN [Concomitant]
     Dosage: UNK
     Dates: start: 19961025
  3. CALCIPOTRIENE [Concomitant]
     Dosage: UNK
     Dates: start: 19960625
  4. NITROLINGUAL [Concomitant]
     Dosage: UNK
     Dates: start: 20010305

REACTIONS (3)
  - MYALGIA [None]
  - PSORIASIS [None]
  - RASH [None]
